FAERS Safety Report 9142668 (Version 3)
Quarter: 2013Q2

REPORT INFORMATION
  Report Type: Spontaneous
  Country: GB (occurrence: GB)
  Receive Date: 20130306
  Receipt Date: 20130604
  Transmission Date: 20140414
  Serious: Yes (Hospitalization)
  Sender: FDA-Public Use
  Company Number: PHFR2013GB001509

PATIENT
  Age: 45 Year
  Sex: Female

DRUGS (7)
  1. CLOZARIL [Suspect]
     Indication: SCHIZOPHRENIA
     Dosage: 300 MG, DAILY
     Route: 048
     Dates: start: 20110524
  2. HYOSCINE [Concomitant]
     Indication: SALIVARY HYPERSECRETION
     Dosage: 300 MG, DAILY
     Route: 048
  3. OMEPRAZOLE [Concomitant]
     Indication: GASTRIC DISORDER
     Dosage: 20 MG, DAILY
     Route: 048
  4. PHENELZINE [Concomitant]
     Indication: AFFECTIVE DISORDER
     Dosage: 45 MG, DAILY
     Route: 048
  5. LAMOTRIGINE [Concomitant]
     Indication: AFFECTIVE DISORDER
     Dosage: 200 MG, DAILY
     Route: 048
  6. LORAZEPAM [Concomitant]
     Indication: ANXIETY
     Dosage: 3 MG, DAILY
     Route: 048
  7. PROCYCLIDINE [Concomitant]
     Dosage: 10 MG, DAILY
     Route: 048

REACTIONS (3)
  - Ear infection [Unknown]
  - Mental impairment [Unknown]
  - Confusional state [Recovered/Resolved]
